FAERS Safety Report 6902234-0 (Version None)
Quarter: 2010Q3

REPORT INFORMATION
  Report Type: 
  Country: None (occurrence: None)
  Receive Date: 20100803
  Receipt Date: 20080428
  Transmission Date: 20110219
  Serious: No
  Sender: FDA-Public Use
  Company Number: US-PFIZER INC-2008037855

PATIENT
  Age: 68 Year
  Sex: Male
  Weight: 97.5 kg

DRUGS (25)
  1. LYRICA [Suspect]
  2. LUNESTA [Concomitant]
     Indication: INSOMNIA
     Route: 048
     Dates: start: 20080301, end: 20080301
  3. LUNESTA [Concomitant]
     Route: 048
     Dates: start: 20080301, end: 20080301
  4. LUNESTA [Concomitant]
     Route: 048
     Dates: start: 20080301, end: 20080301
  5. TYLENOL [Concomitant]
  6. ACETYLSALICYLIC ACID SRT [Concomitant]
  7. SINEMET [Concomitant]
  8. VITAMIN B-12 [Concomitant]
  9. NEXIUM [Concomitant]
  10. ADVAIR DISKUS 100/50 [Concomitant]
  11. FOLIC ACID [Concomitant]
  12. GLIPIZIDE [Concomitant]
  13. LISINOPRIL [Concomitant]
  14. CLARITIN [Concomitant]
  15. TOPROL-XL [Concomitant]
  16. ZOCOR [Concomitant]
  17. TAMSULOSIN HYDROCHLORIDE [Concomitant]
  18. SPIRIVA [Concomitant]
  19. CLONAZEPAM [Concomitant]
  20. ZOLOFT [Concomitant]
  21. RISPERIDONE [Concomitant]
  22. MORPHINE [Concomitant]
  23. CENTRUM SILVER [Concomitant]
  24. FIBERCON [Concomitant]
  25. HERBAL PREPARATION [Concomitant]

REACTIONS (1)
  - WEIGHT INCREASED [None]
